FAERS Safety Report 12294414 (Version 2)
Quarter: 2016Q2

REPORT INFORMATION
  Report Type: Spontaneous
  Country: US (occurrence: US)
  Receive Date: 20160422
  Receipt Date: 20160503
  Transmission Date: 20160815
  Serious: Yes (Death, Other)
  Sender: FDA-Public Use
  Company Number: US-UNITED THERAPEUTICS-UNT-2016-005696

PATIENT
  Age: 69 Year
  Sex: Female
  Weight: 56.69 kg

DRUGS (5)
  1. OXYGEN. [Concomitant]
     Active Substance: OXYGEN
     Indication: PRODUCT USED FOR UNKNOWN INDICATION
  2. SILDENAFIL. [Concomitant]
     Active Substance: SILDENAFIL
     Indication: PRODUCT USED FOR UNKNOWN INDICATION
  3. AMBRISENTAN [Concomitant]
     Active Substance: AMBRISENTAN
     Indication: PRODUCT USED FOR UNKNOWN INDICATION
  4. RITUXAN [Concomitant]
     Active Substance: RITUXIMAB
     Indication: PRODUCT USED FOR UNKNOWN INDICATION
  5. TYVASO [Suspect]
     Active Substance: TREPROSTINIL
     Indication: PULMONARY HYPERTENSION
     Dosage: 18-54 MICROGRAMS, QID
     Dates: start: 20110721, end: 20160405

REACTIONS (11)
  - Interstitial lung disease [Fatal]
  - Oxygen saturation decreased [Unknown]
  - Scleroderma [Fatal]
  - Productive cough [Unknown]
  - Weight decreased [Unknown]
  - Decreased appetite [Unknown]
  - Hypersomnia [Unknown]
  - Aortic stenosis [Unknown]
  - Pulmonary arterial hypertension [Fatal]
  - Bronchitis [Unknown]
  - Pericardial effusion [Unknown]

NARRATIVE: CASE EVENT DATE: 20150318
